FAERS Safety Report 11717355 (Version 3)
Quarter: 2015Q4

REPORT INFORMATION
  Report Type: Report from Study
  Country: BE (occurrence: BE)
  Receive Date: 20151110
  Receipt Date: 20151201
  Transmission Date: 20160304
  Serious: Yes (Hospitalization)
  Sender: FDA-Public Use
  Company Number: BE-CELGENE-BEL-2015106780

PATIENT
  Age: 72 Year
  Sex: Female
  Weight: 57 kg

DRUGS (18)
  1. ALDACTAZINE [Concomitant]
     Active Substance: ALTHIAZIDE\SPIRONOLACTONE
     Route: 065
     Dates: start: 20151023
  2. STEOVIT D3 [Concomitant]
     Active Substance: CALCIUM CARBONATE\CHOLECALCIFEROL
     Indication: PROPHYLAXIS
     Route: 065
     Dates: start: 20151015
  3. ASPIRINE [Concomitant]
     Active Substance: ASPIRIN
     Indication: CHEST PAIN
     Route: 065
  4. ISOBETADINE [Concomitant]
     Indication: INFECTION PROPHYLAXIS
     Route: 065
  5. RED BLOOD CELLS [Concomitant]
     Active Substance: HUMAN RED BLOOD CELL
     Indication: ANAEMIA
     Route: 065
     Dates: start: 20151008, end: 20151008
  6. ABRAXANE [Suspect]
     Active Substance: PACLITAXEL
     Indication: NON-SMALL CELL LUNG CANCER
     Route: 041
     Dates: start: 20150903, end: 20151001
  7. CARBOPLATIN. [Suspect]
     Active Substance: CARBOPLATIN
     Indication: NON-SMALL CELL LUNG CANCER
     Route: 041
     Dates: start: 20150903, end: 20150924
  8. ESCITALOPRAM [Concomitant]
     Active Substance: ESCITALOPRAM OXALATE
     Indication: DEPRESSION
     Route: 065
     Dates: start: 20141217
  9. ALDACTAZINE [Concomitant]
     Active Substance: ALTHIAZIDE\SPIRONOLACTONE
     Indication: HYPERTENSION
     Route: 065
     Dates: start: 20151008
  10. PANTOMED [Concomitant]
     Active Substance: DEXPANTHENOL
     Indication: GASTRITIS PROPHYLAXIS
     Route: 065
     Dates: start: 20150107
  11. INJECTAFER [Concomitant]
     Active Substance: FERRIC CARBOXYMALTOSE
     Indication: ANAEMIA
     Route: 065
     Dates: start: 20150924, end: 20150924
  12. AMOXICILLIN. [Concomitant]
     Active Substance: AMOXICILLIN
     Indication: BRONCHITIS
     Route: 065
     Dates: start: 20151008, end: 20151014
  13. CALCIUM [Concomitant]
     Active Substance: CALCIUM
     Indication: HYPOCALCAEMIA
     Route: 065
     Dates: start: 20151015, end: 20151015
  14. D-CURE [Concomitant]
     Indication: PROPHYLAXIS
     Route: 065
     Dates: start: 20151015
  15. MPDL3280A [Suspect]
     Active Substance: INVESTIGATIONAL PRODUCT
     Indication: NON-SMALL CELL LUNG CANCER
     Route: 041
     Dates: start: 20150903
  16. VITAMIN D [Concomitant]
     Active Substance: CHOLECALCIFEROL
     Indication: PROPHYLAXIS
     Route: 065
  17. ZALDIAR [Concomitant]
     Active Substance: ACETAMINOPHEN\TRAMADOL HYDROCHLORIDE
     Indication: CHEST PAIN
     Route: 065
     Dates: start: 20141210
  18. STEOVIT [Concomitant]
     Active Substance: CALCIUM CARBONATE
     Indication: PROPHYLAXIS
     Route: 065
     Dates: start: 20150311, end: 20151001

REACTIONS (2)
  - Hepatotoxicity [Recovered/Resolved]
  - Cholecystitis [Not Recovered/Not Resolved]

NARRATIVE: CASE EVENT DATE: 20151023
